FAERS Safety Report 6078983-6 (Version None)
Quarter: 2009Q1

REPORT INFORMATION
  Report Type: 
  Country: None (occurrence: None)
  Receive Date: 20090216
  Receipt Date: 20090206
  Transmission Date: 20090719
  Serious: Yes (Hospitalization)
  Sender: FDA-Public Use
  Company Number: US-ELI_LILLY_AND_COMPANY-US200812002357

PATIENT
  Sex: Female

DRUGS (1)
  1. BYETTA [Suspect]
     Dosage: 10 UG, 2/D
     Route: 065
     Dates: start: 20080301, end: 20080801

REACTIONS (10)
  - BACK PAIN [None]
  - BALANCE DISORDER [None]
  - CONTUSION [None]
  - DIZZINESS [None]
  - DYSURIA [None]
  - FALL [None]
  - HAEMATOCHEZIA [None]
  - LIMB INJURY [None]
  - NECK INJURY [None]
  - PANCREATITIS [None]
